FAERS Safety Report 6252240-7 (Version None)
Quarter: 2009Q2

REPORT INFORMATION
  Report Type: 
  Country: None (occurrence: None)
  Receive Date: 20090630
  Receipt Date: 20090622
  Transmission Date: 20091009
  Serious: Yes (Life-Threatening)
  Sender: FDA-Public Use
  Company Number: CA-AMGEN-STX353138

PATIENT
  Age: 80 Year
  Sex: Male
  Weight: 75 kg

DRUGS (24)
  1. SENSIPAR [Suspect]
     Indication: DRUG USE FOR UNKNOWN INDICATION
     Route: 065
  2. COUMADIN [Suspect]
     Route: 048
  3. MULTI-VITAMINS [Suspect]
     Route: 048
  4. BACTROBAN [Concomitant]
  5. BENADRYL [Concomitant]
  6. EMLA [Concomitant]
  7. EPREX [Concomitant]
  8. HECTORAL [Concomitant]
  9. IMDUR [Concomitant]
  10. IMODIUM [Concomitant]
  11. LIPITOR [Concomitant]
  12. MONOCOR [Concomitant]
  13. NITROGLYCERIN [Concomitant]
  14. NORVASC [Concomitant]
  15. OSCAL [Concomitant]
  16. UNSPECIFIED MEDICATION [Concomitant]
  17. BETAMETHASONE VALERATE [Concomitant]
  18. RENAGEL [Concomitant]
  19. MULTI-VITAMINS [Concomitant]
  20. SANDOSTATIN [Concomitant]
  21. SARNA HC [Concomitant]
  22. UREA CREAM [Concomitant]
  23. VENOFER [Concomitant]
  24. VITAMIN B-12 [Concomitant]

REACTIONS (1)
  - PROTHROMBIN TIME PROLONGED [None]
